FAERS Safety Report 5216408-0 (Version None)
Quarter: 2007Q1

REPORT INFORMATION
  Report Type: 
  Country: None (occurrence: None)
  Receive Date: 20070118
  Receipt Date: 20070111
  Transmission Date: 20070707
  Serious: Yes (Hospitalization)
  Sender: FDA-Public Use
  Company Number: 150810USA

PATIENT
  Sex: Female

DRUGS (7)
  1. COPAXONE [Suspect]
     Indication: MULTIPLE SCLEROSIS
     Dosage: (20 MG), SUBCUTANEOUS
     Route: 058
     Dates: start: 20060110, end: 20061202
  2. OMEPRAZOLE [Suspect]
     Dosage: (20 MG), ORAL
     Route: 048
  3. LEVOFLOXACIN [Suspect]
     Indication: SINUSITIS
     Dates: start: 20061001
  4. CEFDINIR [Suspect]
     Indication: SINUSITIS
     Dates: start: 20061001
  5. METOCLOPRAMIDE [Concomitant]
  6. LISINOPRIL [Concomitant]
  7. TROSPIUM CHLORIDE [Concomitant]

REACTIONS (11)
  - BLOOD ALBUMIN DECREASED [None]
  - CARDIAC FAILURE CONGESTIVE [None]
  - CORONARY ARTERY DISEASE [None]
  - DEEP VEIN THROMBOSIS [None]
  - FLUID OVERLOAD [None]
  - GASTROINTESTINAL INFECTION [None]
  - MEGACOLON [None]
  - PRESYNCOPE [None]
  - PSEUDOMEMBRANOUS COLITIS [None]
  - SEPTIC SHOCK [None]
  - SINUSITIS [None]
